FAERS Safety Report 5488954-6 (Version None)
Quarter: 2007Q4

REPORT INFORMATION
  Report Type: 
  Country: None (occurrence: None)
  Receive Date: 20071016
  Receipt Date: 20071001
  Transmission Date: 20080405
  Serious: Yes (Other)
  Sender: FDA-Public Use
  Company Number: 6038537

PATIENT
  Age: 83 Year
  Sex: Male

DRUGS (5)
  1. PRAVASTATIN [Suspect]
     Indication: DRUG USE FOR UNKNOWN INDICATION
     Dosage: 40 MG (40 MG, 1 IN 1 D)
  2. DIGOXIN [Concomitant]
  3. FUROSEMIDE [Concomitant]
  4. RAMIPRIL [Concomitant]
  5. RANITIDINE [Concomitant]

REACTIONS (3)
  - INTERSTITIAL LUNG DISEASE [None]
  - LYMPHOCYTE COUNT DECREASED [None]
  - PULMONARY FIBROSIS [None]
